FAERS Safety Report 22924312 (Version 2)
Quarter: 2023Q4

REPORT INFORMATION
  Report Type: Spontaneous
  Country: CN (occurrence: CN)
  Receive Date: 20230908
  Receipt Date: 20231101
  Transmission Date: 20240110
  Serious: Yes (Hospitalization)
  Sender: FDA-Public Use
  Company Number: CN-SA-SAC20230904001592

PATIENT
  Age: 71 Year
  Sex: Male
  Weight: 85 kg

DRUGS (11)
  1. CLOPIDOGREL BISULFATE [Suspect]
     Active Substance: CLOPIDOGREL BISULFATE
     Indication: Cerebral infarction
     Dosage: 75 MG, QD
     Route: 048
     Dates: start: 20230731, end: 20230813
  2. ASPIRIN [Suspect]
     Active Substance: ASPIRIN
     Indication: Cerebral infarction
     Dosage: 0.1 G, QD
     Route: 048
     Dates: start: 20230731, end: 20230813
  3. FLUNARIZINE HYDROCHLORIDE [Suspect]
     Active Substance: FLUNARIZINE HYDROCHLORIDE
     Indication: Cerebral infarction
     Dosage: 5 MG, QD
     Route: 048
     Dates: start: 20230731, end: 20230813
  4. ATORVASTATIN CALCIUM [Suspect]
     Active Substance: ATORVASTATIN CALCIUM
     Indication: Cerebral infarction
     Dosage: 40 MG, QD
     Route: 048
     Dates: start: 20230731, end: 20230813
  5. THROMBIN [Suspect]
     Active Substance: THROMBIN
     Indication: Cerebral infarction
     Dosage: 100 U, QD
     Route: 041
     Dates: start: 20230731, end: 20230809
  6. HERBALS\PANAX NOTOGINSENG ROOT EXTRACT [Suspect]
     Active Substance: HERBALS\PANAX NOTOGINSENG ROOT EXTRACT
     Indication: Cerebral infarction
     Dosage: 400 MG, QD
     Route: 041
     Dates: start: 20230731, end: 20230809
  7. TROXERUTIN [Concomitant]
     Active Substance: TROXERUTIN
     Indication: Cerebral infarction
     Dosage: 240 MG, QD
     Route: 041
     Dates: start: 20230731, end: 20230808
  8. SODIUM CHLORIDE [Concomitant]
     Active Substance: SODIUM CHLORIDE
     Indication: Vehicle solution use
     Dosage: 250 ML, QD
     Route: 041
     Dates: start: 20230731, end: 20230809
  9. SODIUM CHLORIDE [Concomitant]
     Active Substance: SODIUM CHLORIDE
     Dosage: 100 UNK
     Route: 041
     Dates: start: 20230731, end: 20230809
  10. BUTYLPHTHALIDE [Concomitant]
     Active Substance: BUTYLPHTHALIDE
     Indication: Cerebral infarction
     Dosage: 100 ML, BID
     Route: 041
     Dates: start: 20230801, end: 20230807
  11. MOXIFLOXACIN HYDROCHLORIDE [Concomitant]
     Active Substance: MOXIFLOXACIN HYDROCHLORIDE\MOXIFLOXACIN HYDROCHLORIDE MONOHYDRATE
     Indication: Pneumonitis
     Dosage: 0.4 G, QD
     Route: 041
     Dates: start: 20230801, end: 20230809

REACTIONS (4)
  - Papule [Recovered/Resolved]
  - Rash [Recovered/Resolved]
  - Urticaria [Recovered/Resolved]
  - Pruritus [Recovering/Resolving]

NARRATIVE: CASE EVENT DATE: 20230808
